FAERS Safety Report 8440489-4 (Version None)
Quarter: 2012Q2

REPORT INFORMATION
  Report Type: 
  Country: None (occurrence: None)
  Receive Date: 20120615
  Receipt Date: 20120605
  Transmission Date: 20120825
  Serious: Yes (Hospitalization)
  Sender: FDA-Public Use
  Company Number: RU-VIIV HEALTHCARE LIMITED-B0806984A

PATIENT
  Age: 41 Year
  Sex: Female

DRUGS (3)
  1. ABACAVIR SULFATE/LAMIVUDINE [Suspect]
     Indication: HIV INFECTION
     Route: 048
     Dates: start: 20101224
  2. INTELENCE [Concomitant]
     Indication: HIV INFECTION
     Dosage: 400MG PER DAY
     Route: 048
     Dates: start: 20110429, end: 20110913
  3. KALETRA [Concomitant]
     Indication: HIV INFECTION
     Route: 048
     Dates: start: 20110914

REACTIONS (17)
  - OPTIC ATROPHY [None]
  - ABDOMINAL PAIN LOWER [None]
  - ASTHENIA [None]
  - AMNIOTIC FLUID VOLUME DECREASED [None]
  - PYELONEPHRITIS CHRONIC [None]
  - TUBERCULOSIS [None]
  - HYDRONEPHROSIS [None]
  - FOETAL DEATH [None]
  - HYPOCHROMIC ANAEMIA [None]
  - CHORIOAMNIONITIS [None]
  - MATERNAL EXPOSURE DURING PREGNANCY [None]
  - PROGRESSIVE MULTIFOCAL LEUKOENCEPHALOPATHY [None]
  - OPTIC NEURITIS [None]
  - EPILEPSY [None]
  - CALCULUS URINARY [None]
  - INFERTILITY FEMALE [None]
  - ABNORMAL BEHAVIOUR [None]
